FAERS Safety Report 4880921-6 (Version None)
Quarter: 2005Q4

REPORT INFORMATION
  Report Type: 
  Country: None (occurrence: None)
  Receive Date: 20051223
  Receipt Date: 20051026
  Transmission Date: 20060501
  Serious: No
  Sender: FDA-Public Use
  Company Number: 05P-163-0315183-00

PATIENT
  Age: 42 Year
  Sex: Male
  Weight: 122.7 kg

DRUGS (6)
  1. HUMIRA [Suspect]
     Indication: SARCOIDOSIS
     Dosage: 40 MG, 1 IN 2 WK, SUBCUTANEOUS
     Route: 058
     Dates: start: 20050928
  2. METHOTREXATE [Concomitant]
  3. PREDISONE [Concomitant]
  4. QUINAPRIL [Concomitant]
  5. METOPROLOL [Concomitant]
  6. PROPACET 100 [Concomitant]

REACTIONS (5)
  - ASTHENIA [None]
  - HYPERSENSITIVITY [None]
  - INJECTION SITE BRUISING [None]
  - NIGHT SWEATS [None]
  - PAIN [None]
